FAERS Safety Report 20543250 (Version 2)
Quarter: 2022Q2

REPORT INFORMATION
  Report Type: Spontaneous
  Country: US (occurrence: US)
  Receive Date: 20220302
  Receipt Date: 20220419
  Transmission Date: 20220720
  Serious: No
  Sender: FDA-Public Use
  Company Number: US-PFIZER INC-202101361051

PATIENT
  Age: 71 Year
  Sex: Female

DRUGS (2)
  1. BRAFTOVI [Suspect]
     Active Substance: ENCORAFENIB
     Indication: Thyroid cancer
     Dosage: 675 MG, DAILY, TAKE 3 CAPSULES (225MG) DAILY
  2. MEKTOVI [Suspect]
     Active Substance: BINIMETINIB
     Indication: Thyroid cancer
     Dosage: 30 MG, 2X/DAY

REACTIONS (4)
  - Off label use [Unknown]
  - Neoplasm progression [Not Recovered/Not Resolved]
  - Anosmia [Recovering/Resolving]
  - Ageusia [Recovering/Resolving]
